FAERS Safety Report 9548335 (Version 1)
Quarter: 2013Q3

REPORT INFORMATION
  Report Type: Spontaneous
  Country: US (occurrence: None)
  Receive Date: 20130923
  Receipt Date: 20130923
  Transmission Date: 20140515
  Serious: Yes (Other)
  Sender: FDA-Public Use
  Company Number: None

PATIENT
  Age: 16 Year
  Sex: Female
  Weight: 61.6 kg

DRUGS (4)
  1. INFLIXIMAB [Suspect]
     Indication: CROHN^S DISEASE
     Route: 042
  2. TYLENOL [Concomitant]
  3. BENADRYL [Concomitant]
  4. SOLUMEDROL [Concomitant]

REACTIONS (1)
  - Pain in extremity [None]
